FAERS Safety Report 22110536 (Version 1)
Quarter: 2023Q1

REPORT INFORMATION
  Report Type: Spontaneous
  Country: US (occurrence: None)
  Receive Date: 20230317
  Receipt Date: 20230317
  Transmission Date: 20230418
  Serious: Yes (Death)
  Sender: FDA-Public Use
  Company Number: None

PATIENT
  Age: 61 Year
  Sex: Female

DRUGS (21)
  1. VELTASSA [Suspect]
     Active Substance: PATIROMER
     Indication: Hyperkalaemia
     Dosage: FREQUENCY : DAILY;?
     Route: 048
     Dates: start: 20210726, end: 20230302
  2. AMIODARONE [Concomitant]
     Active Substance: AMIODARONE
  3. CALCIUM ACETATE [Concomitant]
  4. CARVEDILOL [Concomitant]
     Active Substance: CARVEDILOL
  5. CLONIDINE [Concomitant]
     Active Substance: CLONIDINE
  6. DICYCLOMINE [Concomitant]
     Active Substance: DICYCLOMINE HYDROCHLORIDE
  7. DILTIAZEM [Concomitant]
     Active Substance: DILTIAZEM
  8. DULOXETINE [Concomitant]
     Active Substance: DULOXETINE
  9. LEVETIRACETAM [Concomitant]
     Active Substance: LEVETIRACETAM
  10. LINZESS [Concomitant]
     Active Substance: LINACLOTIDE
  11. LOSARTAN [Concomitant]
     Active Substance: LOSARTAN
  12. METOPROLOL TARTRATE [Concomitant]
  13. NITROSTAT [Concomitant]
     Active Substance: NITROGLYCERIN
  14. PLAVIX [Concomitant]
  15. PRAVASTATIN [Concomitant]
     Active Substance: PRAVASTATIN
  16. TORSEMIDE [Concomitant]
     Active Substance: TORSEMIDE
  17. XIFAXAN [Concomitant]
     Active Substance: RIFAXIMIN
  18. ZOLPIDEM [Concomitant]
     Active Substance: ZOLPIDEM TARTRATE
  19. ELIQUIS [Concomitant]
     Active Substance: APIXABAN
  20. CARDIZEM [Concomitant]
     Active Substance: DILTIAZEM HYDROCHLORIDE
  21. PREVACID [Concomitant]
     Active Substance: LANSOPRAZOLE

REACTIONS (2)
  - Pain in extremity [None]
  - Myocardial infarction [None]

NARRATIVE: CASE EVENT DATE: 20230308
